FAERS Safety Report 9152274 (Version 1)
Quarter: 2013Q1

REPORT INFORMATION
  Report Type: Spontaneous
  Country: NO (occurrence: NO)
  Receive Date: 20130308
  Receipt Date: 20130308
  Transmission Date: 20140127
  Serious: Yes (Hospitalization)
  Sender: FDA-Public Use
  Company Number: NO-ASTRAZENECA-2013SE13420

PATIENT
  Age: 24202 Day
  Sex: Male

DRUGS (4)
  1. NEXIUM [Suspect]
     Route: 048
     Dates: start: 200906
  2. SOMAC [Suspect]
     Route: 048
     Dates: start: 200906
  3. TRIOBE [Concomitant]
     Indication: ALCOHOL ABUSE
     Dosage: EVERY DAY
     Route: 048
  4. VALLERGAN [Concomitant]
     Indication: INSOMNIA
     Route: 048

REACTIONS (4)
  - Hypokalaemia [Unknown]
  - Hypocalcaemia [Unknown]
  - Hypomagnesaemia [Unknown]
  - Grand mal convulsion [Unknown]
